FAERS Safety Report 25322976 (Version 1)
Quarter: 2025Q2

REPORT INFORMATION
  Report Type: Spontaneous
  Country: FR (occurrence: FR)
  Receive Date: 20250516
  Receipt Date: 20250516
  Transmission Date: 20250717
  Serious: Yes (Other)
  Sender: AUROBINDO
  Company Number: FR-AFSSAPS-MA2025000433

PATIENT
  Age: 21 Year
  Sex: Female

DRUGS (2)
  1. ACETAMINOPHEN [Suspect]
     Active Substance: ACETAMINOPHEN
     Indication: Pyrexia
     Route: 048
     Dates: start: 20241108
  2. PERFALGAN [Suspect]
     Active Substance: ACETAMINOPHEN
     Indication: Pyrexia
     Route: 042
     Dates: start: 20241108

REACTIONS (2)
  - Analgesic drug level increased [Recovered/Resolved]
  - Overdose [Recovered/Resolved]

NARRATIVE: CASE EVENT DATE: 20241108
